FAERS Safety Report 7917951-3 (Version None)
Quarter: 2011Q4

REPORT INFORMATION
  Report Type: 
  Country: None (occurrence: None)
  Receive Date: 20111116
  Receipt Date: 20111114
  Transmission Date: 20120403
  Serious: Yes (Hospitalization)
  Sender: FDA-Public Use
  Company Number: PHHY2011FI099782

PATIENT
  Sex: Male

DRUGS (13)
  1. SITAGLIPTIN [Concomitant]
     Indication: TYPE 2 DIABETES MELLITUS
     Dosage: 1 TABL/PER DAY
  2. PREDNISOLONE [Concomitant]
     Indication: RHEUMATIC HEART DISEASE
     Dosage: 1 TABL/DAY
  3. FINASTERIDE [Concomitant]
     Indication: BENIGN PROSTATIC HYPERPLASIA
     Dosage: 1  TABL/DAY
  4. DIFORMIN RETARD [Concomitant]
     Indication: TYPE 2 DIABETES MELLITUS
     Dosage: 2+2 TABL/DAY
  5. BISOPROLOL FUMARATE [Concomitant]
     Indication: HYPERTENSION
     Dosage: 1/2 TABL 2X DAY
  6. LEVEMIR [Concomitant]
     Indication: TYPE 2 DIABETES MELLITUS
     Dosage: 68 UNITS/DAY
  7. PRIMASPAN [Concomitant]
     Indication: CORONARY ARTERY DISEASE
     Dosage: 1 GASTRO-RESISTANT TABL/DAY
  8. NOVORAPID [Concomitant]
     Indication: TYPE 2 DIABETES MELLITUS
     Dosage: 10 + 15 UNITS/DAY
     Route: 042
  9. TAMSULOSIN HCL [Concomitant]
     Indication: BENIGN PROSTATIC HYPERPLASIA
     Dosage: 1 PROLONGED-RELEASE CAPS/DAY
  10. LIPITOR [Concomitant]
     Indication: HYPERCHOLESTEROLAEMIA
     Dosage: 1 TABL/DAY
  11. OMEPRAZOLE [Concomitant]
     Dosage: 1 GASTRO-RESISTANT CAPS/DAY
  12. ZOLEDRONOC ACID [Suspect]
     Indication: OSTEOPOROSIS
     Dosage: 5 MG
     Route: 042
     Dates: start: 20111102
  13. GLUCOSAMINE [Concomitant]
     Indication: OSTEOARTHRITIS
     Dosage: 1 TABL. 3X/DAY

REACTIONS (8)
  - ABDOMINAL PAIN UPPER [None]
  - BLOOD PRESSURE INCREASED [None]
  - CHEST DISCOMFORT [None]
  - PYREXIA [None]
  - LEUKOCYTOSIS [None]
  - TREMOR [None]
  - C-REACTIVE PROTEIN INCREASED [None]
  - HAEMOGLOBIN DECREASED [None]
